FAERS Safety Report 8810265 (Version 8)
Quarter: 2013Q3

REPORT INFORMATION
  Report Type: Report from Study
  Country: SE (occurrence: SE)
  Receive Date: 20120926
  Receipt Date: 20130905
  Transmission Date: 20140515
  Serious: Yes (Hospitalization)
  Sender: FDA-Public Use
  Company Number: SE-009507513-1209SWE009165

PATIENT
  Age: 60 Year
  Sex: Female

DRUGS (3)
  1. VICTRELIS [Suspect]
     Indication: HEPATITIS C
     Dosage: 800 MG, TID
     Route: 048
     Dates: start: 20120621, end: 20120709
  2. RIBAVIRIN [Suspect]
     Indication: HEPATITIS C
     Dosage: 400 MG, BID
     Route: 048
     Dates: start: 20120510, end: 20120709
  3. PEGINTERFERON ALFA-2A [Suspect]
     Indication: HEPATITIS C
     Dosage: 135 MICROGRAM, QW
     Route: 058
     Dates: start: 20120510, end: 20120709

REACTIONS (3)
  - Sepsis [Recovered/Resolved with Sequelae]
  - Extradural abscess [Recovering/Resolving]
  - Intervertebral discitis [Not Recovered/Not Resolved]
